FAERS Safety Report 4293180-2 (Version None)
Quarter: 2004Q1

REPORT INFORMATION
  Report Type: 
  Country: None (occurrence: None)
  Receive Date: 20040210
  Receipt Date: 20040128
  Transmission Date: 20041129
  Serious: Yes (Other)
  Sender: FDA-Public Use
  Company Number: HQWYE589728JAN04

PATIENT
  Sex: Female

DRUGS (4)
  1. ADVIL [Suspect]
     Dosage: ORAL
     Route: 048
  2. AVELOX [Suspect]
     Indication: SINUSITIS
     Dosage: ORAL
     Route: 048
  3. AVELOX [Suspect]
     Indication: UPPER RESPIRATORY TRACT INFECTION
     Dosage: ORAL
     Route: 048
  4. NSAID'S (NSAID'S) [Concomitant]

REACTIONS (2)
  - CONVULSION [None]
  - TREMOR [None]
